FAERS Safety Report 24789713 (Version 1)
Quarter: 2024Q4

REPORT INFORMATION
  Report Type: Spontaneous
  Country: US (occurrence: None)
  Receive Date: 20241229
  Receipt Date: 20241229
  Transmission Date: 20250114
  Serious: Yes (unspecified)
  Sender: Public
  Company Number: None

PATIENT
  Age: 66 Year
  Sex: Female
  Weight: 125.1 kg

DRUGS (2)
  1. SEMAGLUTIDE [Suspect]
     Active Substance: SEMAGLUTIDE
     Indication: Weight decreased
     Dates: start: 20241110, end: 20241229
  2. cod live oil tbsp [Concomitant]

REACTIONS (3)
  - Blood pressure increased [None]
  - Heart rate increased [None]
  - Blood pressure fluctuation [None]

NARRATIVE: CASE EVENT DATE: 20241223
